FAERS Safety Report 9014487 (Version 3)
Quarter: 2013Q1

REPORT INFORMATION
  Report Type: Report from Study
  Country: DE (occurrence: DE)
  Receive Date: 20130115
  Receipt Date: 20130325
  Transmission Date: 20140127
  Serious: Yes (Hospitalization)
  Sender: FDA-Public Use
  Company Number: DE-GLAXOSMITHKLINE-B0858494A

PATIENT
  Sex: Female
  Weight: 69.8 kg

DRUGS (5)
  1. LAPATINIB [Suspect]
     Indication: BREAST CANCER
     Dosage: 1250MG PER DAY
     Route: 048
     Dates: start: 20120806
  2. VINORELBINE [Suspect]
     Indication: BREAST CANCER
     Dosage: 37MG CYCLIC
     Route: 042
     Dates: start: 20120806
  3. CAPECITABINE [Suspect]
     Indication: BREAST CANCER
     Dosage: 3700MG CYCLIC
     Route: 048
     Dates: start: 20120806
  4. FUROSEMID [Concomitant]
     Dosage: 40MG PER DAY
  5. INNOHEP [Concomitant]
     Dosage: 20000UNIT PER DAY
     Route: 058

REACTIONS (3)
  - Dehydration [Recovered/Resolved with Sequelae]
  - Status epilepticus [Unknown]
  - Disease progression [Fatal]
